FAERS Safety Report 7349110-X (Version None)
Quarter: 2011Q1

REPORT INFORMATION
  Report Type: 
  Country: None (occurrence: None)
  Receive Date: 20110314
  Receipt Date: 20110303
  Transmission Date: 20110831
  Serious: Yes (Death, Life-Threatening, Hospitalization)
  Sender: FDA-Public Use
  Company Number: GB-CELGENEUS-167-C5013-10121453

PATIENT
  Sex: Male
  Weight: 58.9 kg

DRUGS (20)
  1. TAMSULOSIN [Concomitant]
     Dosage: 10 MILLIGRAM
     Route: 048
     Dates: start: 20080102
  2. ASPIRIN [Concomitant]
     Indication: PROPHYLAXIS
     Route: 048
     Dates: start: 20100604
  3. DEXAMETHASONE [Suspect]
     Dosage: 20 MILLIGRAM
     Route: 065
     Dates: start: 20101125, end: 20101213
  4. ALLOPURINOL [Concomitant]
     Indication: PROPHYLAXIS
     Dosage: 100 MILLIGRAM
     Route: 048
     Dates: start: 20100219
  5. COTRIM [Concomitant]
     Indication: INFECTION PROPHYLAXIS
     Route: 048
     Dates: start: 20060219
  6. LACTULOSE [Concomitant]
     Indication: CONSTIPATION
     Route: 048
     Dates: start: 20060912
  7. CC-5013 [Suspect]
     Dosage: 25 MILLIGRAM
     Route: 048
     Dates: start: 20101125, end: 20101213
  8. FINASTERIDE [Concomitant]
     Route: 048
     Dates: start: 20080102
  9. SIMVASTATIN [Concomitant]
     Dosage: 40 MILLIGRAM
     Route: 048
     Dates: start: 20070222
  10. GLICAZIDE [Concomitant]
     Dosage: 80 MILLIGRAM
     Route: 048
     Dates: start: 20031027
  11. METFORMIN [Concomitant]
     Route: 048
     Dates: start: 20060925
  12. DEXAMETHASONE [Suspect]
     Indication: MULTIPLE MYELOMA
     Dosage: 20 MILLIGRAM
     Route: 065
     Dates: start: 20100219
  13. TRUSOPT [Concomitant]
     Indication: GLAUCOMA
     Route: 047
     Dates: start: 20090305
  14. CC-5013 [Suspect]
     Indication: MULTIPLE MYELOMA
     Dosage: 25 MILLIGRAM
     Route: 048
     Dates: start: 20100219
  15. LANSOPRAZOLE [Concomitant]
     Dosage: 30 MILLIGRAM
     Route: 048
     Dates: start: 20070309
  16. ADCAL [Concomitant]
     Indication: OSTEOPOROSIS PROPHYLAXIS
     Route: 048
     Dates: start: 20090701
  17. CLODRONATE DISODIUM [Concomitant]
     Indication: OSTEOPOROSIS PROPHYLAXIS
     Dosage: 800 MILLIGRAM
     Route: 048
     Dates: start: 20100122
  18. TRAVATAN [Concomitant]
     Indication: GLAUCOMA
     Route: 047
     Dates: start: 20040112
  19. TIMOLOL [Concomitant]
     Indication: GLAUCOMA
     Route: 047
     Dates: start: 20090203
  20. FENTANYL [Concomitant]
     Route: 062
     Dates: start: 20100610

REACTIONS (3)
  - H1N1 INFLUENZA [None]
  - RESPIRATORY FAILURE [None]
  - NEUTROPENIC SEPSIS [None]
